FAERS Safety Report 13871734 (Version 1)
Quarter: 2017Q3

REPORT INFORMATION
  Report Type: Spontaneous
  Country: US (occurrence: US)
  Receive Date: 20170816
  Receipt Date: 20170816
  Transmission Date: 20171127
  Serious: Yes (Hospitalization)
  Sender: FDA-Public Use
  Company Number: US-NOVOPROD-558314

PATIENT
  Age: 51 Year
  Sex: Female

DRUGS (1)
  1. NOVOLOG [Suspect]
     Active Substance: INSULIN ASPART
     Indication: TYPE 2 DIABETES MELLITUS
     Route: 058

REACTIONS (3)
  - Nephrolithiasis [Unknown]
  - Urinary tract infection [Unknown]
  - Emphysematous pyelonephritis [Unknown]

NARRATIVE: CASE EVENT DATE: 201703
